FAERS Safety Report 6392050-3 (Version None)
Quarter: 2009Q4

REPORT INFORMATION
  Report Type: 
  Country: None (occurrence: None)
  Receive Date: 20091007
  Receipt Date: 20091005
  Transmission Date: 20100525
  Serious: Yes (Hospitalization)
  Sender: FDA-Public Use
  Company Number: US-B.I. PHARMACEUTICALS,INC./RIDGEFIELD-2009-BP-11594PF

PATIENT
  Sex: Female

DRUGS (19)
  1. SPIRIVA [Suspect]
     Indication: CHRONIC OBSTRUCTIVE PULMONARY DISEASE
     Dosage: 18 MCG
     Route: 055
     Dates: start: 20071001
  2. ADVAIR DISKUS 100/50 [Concomitant]
     Dosage: 500 MG
  3. ANTIVERT [Concomitant]
     Dosage: 25 MG
  4. BENICAR [Concomitant]
  5. ASPIRIN [Concomitant]
     Dosage: 325 MG
  6. FLEXERIL [Concomitant]
  7. FLONASE [Concomitant]
  8. LASIX [Concomitant]
     Dosage: 80 MG
  9. LIDODERM [Concomitant]
  10. LIPITOR (LOPID) [Concomitant]
     Dosage: 40 MG
  11. NEXIUM [Concomitant]
     Dosage: 600 MG
  12. PLAVIX [Concomitant]
     Dosage: 75 MG
  13. PREMARIN [Concomitant]
     Dosage: 1.25 MG
  14. SINGULAIR [Concomitant]
     Dosage: 10 MG
  15. COREG [Concomitant]
     Dosage: 12.5 MG
  16. TRANSXENE T [Concomitant]
     Dosage: 3.75 MG
  17. TRICOR [Concomitant]
     Dosage: 160 MG
  18. XOPENEX NEBULIZER [Concomitant]
  19. ZOLOFT [Concomitant]
     Dosage: 50 MG

REACTIONS (4)
  - FIBROMYALGIA [None]
  - GAIT DISTURBANCE [None]
  - HEART RATE DECREASED [None]
  - RENAL FAILURE [None]
